FAERS Safety Report 12858688 (Version 1)
Quarter: 2016Q4

REPORT INFORMATION
  Report Type: Spontaneous
  Country: US (occurrence: US)
  Receive Date: 20161018
  Receipt Date: 20161018
  Transmission Date: 20170207
  Serious: No
  Sender: FDA-Public Use
  Company Number: US-NOVOPROD-508658

PATIENT
  Age: 49 Year
  Sex: Male

DRUGS (1)
  1. TRESIBA [Suspect]
     Active Substance: INSULIN DEGLUDEC
     Indication: DIABETES MELLITUS
     Dosage: 20 U, QD AT NIGHT
     Route: 058

REACTIONS (3)
  - Visual acuity reduced [Unknown]
  - Panic reaction [Unknown]
  - Device failure [Recovered/Resolved]
